FAERS Safety Report 8834303 (Version 1)
Quarter: 2012Q4

REPORT INFORMATION
  Report Type: Report from Study
  Country: DE (occurrence: DE)
  Receive Date: 20121010
  Receipt Date: 20121010
  Transmission Date: 20130627
  Serious: Yes (Hospitalization)
  Sender: FDA-Public Use
  Company Number: GXKR2012DE003132

PATIENT
  Age: 78 Year
  Sex: Female
  Weight: 82 kg

DRUGS (7)
  1. FILGRASTIM [Suspect]
     Indication: PROPHYLAXIS
     Dosage: 300 ug, QD
     Route: 058
     Dates: start: 20120903, end: 20120906
  2. FILGRASTIM [Suspect]
     Dosage: 300 ug, QD
     Route: 058
     Dates: start: 20120917, end: 20120921
  3. DOXORUBICIN [Suspect]
     Indication: NON-HODGKIN^S LYMPHOMA
  4. VINCRISTINE [Suspect]
     Indication: NON-HODGKIN^S LYMPHOMA
  5. PREDNISONE [Suspect]
  6. CYCLOPHOSPHAMIDE [Suspect]
     Indication: NON-HODGKIN^S LYMPHOMA
     Dosage: UNK UKN, UNK
  7. RITUXIMAB [Suspect]
     Indication: NON-HODGKIN^S LYMPHOMA

REACTIONS (3)
  - Dyspnoea [Recovered/Resolved]
  - Dehydration [Recovered/Resolved]
  - General physical condition abnormal [Recovered/Resolved]
